FAERS Safety Report 8173718-5 (Version None)
Quarter: 2012Q1

REPORT INFORMATION
  Report Type: 
  Country: None (occurrence: None)
  Receive Date: 20120229
  Receipt Date: 20120220
  Transmission Date: 20120608
  Serious: Yes (Other)
  Sender: FDA-Public Use
  Company Number: FR-NAPPMUNDI-GBR-2012-0009831

PATIENT
  Sex: Male

DRUGS (6)
  1. OXYCODONE HYDROCHLORIDE [Suspect]
     Indication: PAIN
     Route: 065
  2. DURAGESIC-100 [Suspect]
     Indication: PAIN
     Route: 062
  3. BENZODIAZEPINE DERIVATIVES [Concomitant]
  4. OXYCONTIN [Suspect]
     Indication: PAIN
     Dosage: UNK
     Route: 065
  5. INSTANYL [Suspect]
     Indication: PAIN
     Route: 065
  6. LYRICA [Concomitant]

REACTIONS (2)
  - CHOREOATHETOSIS [None]
  - PAIN [None]
